FAERS Safety Report 17805124 (Version 2)
Quarter: 2020Q2

REPORT INFORMATION
  Report Type: Spontaneous
  Country: US (occurrence: US)
  Receive Date: 20200520
  Receipt Date: 20200528
  Transmission Date: 20200714
  Serious: Yes (Other)
  Sender: FDA-Public Use
  Company Number: US-DRREDDYS-USA/USA/20/0123126

PATIENT
  Age: 81 Year
  Sex: Female

DRUGS (3)
  1. FLUCONAZOLE. [Suspect]
     Active Substance: FLUCONAZOLE
     Route: 065
  2. FLUCONAZOLE. [Suspect]
     Active Substance: FLUCONAZOLE
     Indication: URINARY TRACT INFECTION
     Route: 065
  3. ZOSYN [Suspect]
     Active Substance: PIPERACILLIN SODIUM\TAZOBACTAM SODIUM
     Indication: URINARY TRACT INFECTION
     Route: 065

REACTIONS (3)
  - Hydronephrosis [Unknown]
  - Candida infection [Unknown]
  - Blood creatinine increased [Unknown]
